FAERS Safety Report 6040190-0 (Version None)
Quarter: 2009Q1

REPORT INFORMATION
  Report Type: 
  Country: None (occurrence: None)
  Receive Date: 20090116
  Receipt Date: 20080108
  Transmission Date: 20090719
  Serious: No
  Sender: FDA-Public Use
  Company Number: US-BRISTOL-MYERS SQUIBB COMPANY-14033757

PATIENT
  Age: 30 Year
  Sex: Male
  Weight: 91 kg

DRUGS (4)
  1. ABILIFY [Suspect]
     Indication: BIPOLAR DISORDER
     Dosage: 15MG DAILY FROM 20DEC AND INCREASED TO 30 MG AFTER ONE WEEK
     Route: 048
     Dates: start: 20071220
  2. LITHIUM [Concomitant]
  3. LEXAPRO [Concomitant]
  4. TRAZODONE HCL [Concomitant]

REACTIONS (1)
  - AKATHISIA [None]
